FAERS Safety Report 4448766-9 (Version None)
Quarter: 2004Q3

REPORT INFORMATION
  Report Type: 
  Country: None (occurrence: None)
  Receive Date: 20040910
  Receipt Date: 20040910
  Transmission Date: 20050211
  Serious: No
  Sender: FDA-Public Use
  Company Number: None

PATIENT
  Age: 45 Year
  Sex: Male

DRUGS (1)
  1. ILIAC CREST [Suspect]
     Dosage: BONE GRAFT
     Route: 050
     Dates: start: 20040607, end: 20040901

REACTIONS (2)
  - GRAFT COMPLICATION [None]
  - SURGICAL PROCEDURE REPEATED [None]
